FAERS Safety Report 15625399 (Version 3)
Quarter: 2020Q1

REPORT INFORMATION
  Report Type: Report from Study
  Country: CN (occurrence: CN)
  Receive Date: 20181116
  Receipt Date: 20200228
  Transmission Date: 20200409
  Serious: Yes (Hospitalization)
  Sender: FDA-Public Use
  Company Number: CN-ROCHE-2212398

PATIENT
  Age: 49 Year
  Sex: Female
  Weight: 56 kg

DRUGS (25)
  1. COMPOUND SODIUM CHLORIDE [CALCIUM CHLORIDE;POTASSIUM CHLORIDE;SODIUM C [Concomitant]
     Route: 065
     Dates: start: 20181010, end: 20181010
  2. CARBOPLATIN. [Suspect]
     Active Substance: CARBOPLATIN
     Indication: OVARIAN CANCER
     Dosage: 6 MILLIGRAMS PER MILLILITER*MINUTE (MG/ML*MIN) ON DAY 1 OF EACH 21 DAY CYCLE FOR A TOTAL OF 6 CYCLES
     Route: 042
     Dates: start: 20180808
  3. URSODEOXYCHOLIC ACID [Concomitant]
     Active Substance: URSODIOL
     Route: 065
     Dates: start: 20180914, end: 20181101
  4. PROMETHAZINE HYDROCHLORIDE. [Concomitant]
     Active Substance: PROMETHAZINE HYDROCHLORIDE
     Route: 065
     Dates: start: 20181010, end: 20181010
  5. DUPHALAC [Concomitant]
     Active Substance: LACTULOSE
     Indication: CONSTIPATION
     Route: 048
     Dates: start: 20180806, end: 20181101
  6. GLYCYRRHIZIN [GLYCYRRHIZA GLABRA] [Concomitant]
     Active Substance: GLYCYRRHIZA GLABRA\HERBALS
     Route: 065
     Dates: start: 20181011, end: 20181012
  7. ATEZOLIZUMAB. [Suspect]
     Active Substance: ATEZOLIZUMAB
     Indication: OVARIAN CANCER
     Dosage: ON DAY 1 OF EACH 21 DAY CYCLE. DATE OF MOST RECENT DOSE OF ATEZOLIZUMAB PRIOR TO AE ONSET 10/OCT/201
     Route: 042
     Dates: start: 20180808
  8. METOCLOPRAMIDE DIHYDROCHLORIDE [Concomitant]
     Route: 065
     Dates: start: 20181010, end: 20181010
  9. CIMETIDINE [Concomitant]
     Active Substance: CIMETIDINE
     Route: 065
     Dates: start: 20181010, end: 20181010
  10. PALONOSETRON HYDROCHLORIDE. [Concomitant]
     Active Substance: PALONOSETRON HYDROCHLORIDE
     Route: 065
     Dates: start: 20181010, end: 20181010
  11. BEVACIZUMAB. [Suspect]
     Active Substance: BEVACIZUMAB
     Indication: OVARIAN CANCER
     Dosage: 930 MG DOSE OF LAST BEVACIZUMAB ADMINISTERED PRIOR TO SAE ONSET 10/OCT/2018.
     Route: 042
     Dates: start: 20180918
  12. PACLITAXEL. [Suspect]
     Active Substance: PACLITAXEL
     Indication: OVARIAN CANCER
     Dosage: 175 MILLIGRAMS PER SQUARE METER (MG/M^2) IV INFUSION ON DAY 1 OF EACH 21-DAY CYCLE. DATE OF MOST REC
     Route: 042
     Dates: start: 20180808
  13. VITAMIN C [Concomitant]
     Active Substance: ASCORBIC ACID
     Indication: VITAMIN SUPPLEMENTATION
     Route: 065
     Dates: start: 20181011, end: 20181011
  14. GLUTATHIONE REDUCED [Concomitant]
     Route: 065
     Dates: start: 20181011, end: 20181011
  15. GLUTATHIONE REDUCED [Concomitant]
     Route: 065
     Dates: start: 20180930, end: 20181005
  16. GLUCOSE [Concomitant]
     Active Substance: DEXTROSE
     Route: 065
     Dates: start: 20181011, end: 20181012
  17. POLYENE PHOSPHATIDYLCHOLINE [Concomitant]
     Active Substance: PHOSPHOLIPID
     Route: 065
     Dates: start: 20180919, end: 20181101
  18. DIAMMONIUM GLYCYRRHIZINATE [Concomitant]
     Active Substance: HERBALS\DIAMMONIUM GLYCYRRHIZINATE
     Route: 065
     Dates: start: 20181006, end: 20181128
  19. PANTOPRAZOLE SODIUM. [Concomitant]
     Active Substance: PANTOPRAZOLE SODIUM
     Route: 065
     Dates: start: 20181011, end: 20181011
  20. SILIBININ [Concomitant]
     Active Substance: SILIBININ
     Route: 065
     Dates: start: 20181006, end: 20181128
  21. DEXAMETHASONE ACETATE [Concomitant]
     Active Substance: DEXAMETHASONE ACETATE
     Route: 048
     Dates: start: 20181009, end: 20181010
  22. DEXAMETHASONE SODIUM PHOSPHATE. [Concomitant]
     Active Substance: DEXAMETHASONE SODIUM PHOSPHATE
     Route: 042
     Dates: start: 20181010, end: 20181010
  23. LEUCOGEN [Concomitant]
     Active Substance: LEUCOGEN
     Route: 065
     Dates: start: 20181012, end: 20190207
  24. VITAMIN B6 [Concomitant]
     Active Substance: PYRIDOXINE HYDROCHLORIDE
     Indication: VITAMIN SUPPLEMENTATION
     Route: 065
     Dates: start: 20181011, end: 20181011
  25. POTASSIUM CHLORIDE. [Concomitant]
     Active Substance: POTASSIUM CHLORIDE
     Route: 065
     Dates: start: 20181011, end: 20181011

REACTIONS (1)
  - Ileus [Recovered/Resolved]

NARRATIVE: CASE EVENT DATE: 20181101
